FAERS Safety Report 7323769-5 (Version None)
Quarter: 2011Q1

REPORT INFORMATION
  Report Type: 
  Country: None (occurrence: None)
  Receive Date: 20110301
  Receipt Date: 20110218
  Transmission Date: 20110831
  Serious: Yes (Hospitalization)
  Sender: FDA-Public Use
  Company Number: US-PERRIGO-10US015465

PATIENT
  Sex: Male
  Weight: 181.41 kg

DRUGS (14)
  1. NAPROXEN SODIUM [Suspect]
     Dosage: 440 MG, SINGLE
     Route: 048
     Dates: start: 20101201, end: 20101201
  2. METOPROLOL [Concomitant]
     Indication: HYPERTENSION
     Dosage: 50 MG, BID
     Route: 048
  3. LORTAB [Suspect]
     Indication: MUSCULOSKELETAL CHEST PAIN
     Dosage: 2 TABLETS EVERY 6 HOURS
     Route: 048
     Dates: start: 20101122, end: 20101130
  4. INSULIN [Concomitant]
     Indication: DIABETES MELLITUS
     Dosage: 4 UNITS, AT NIGHT TIME
     Route: 058
  5. LISINOPRIL AND HYDROCHLOROTHIAZIDE [Concomitant]
     Indication: HYPERTENSION
     Dosage: 20/12.5, BID
     Route: 048
  6. NAPROXEN SODIUM [Suspect]
     Indication: MUSCULOSKELETAL CHEST PAIN
     Dosage: 880 MG, QD
     Route: 048
     Dates: start: 20101123, end: 20101127
  7. NAPROXEN SODIUM [Suspect]
     Dosage: 880 MG, QD
     Route: 048
     Dates: start: 20101128, end: 20101129
  8. FLEXERIL [Suspect]
     Indication: MUSCULOSKELETAL CHEST PAIN
     Dosage: 20 MG, TID
     Route: 048
     Dates: start: 20101123, end: 20101130
  9. ZETIA [Concomitant]
     Indication: BLOOD CHOLESTEROL INCREASED
     Dosage: 10 MG, QD
     Route: 048
  10. METFORMIN [Concomitant]
     Indication: DIABETES MELLITUS
     Dosage: 1000 MG, BID
     Route: 048
  11. GLIPIZIDE [Concomitant]
     Indication: DIABETES MELLITUS
     Dosage: 10 MG, BID
     Route: 048
  12. ACTOS [Concomitant]
     Indication: DIABETES MELLITUS
     Dosage: 10 MG, QD
     Route: 048
  13. PERCOCET [Suspect]
     Indication: MUSCULOSKELETAL CHEST PAIN
     Dosage: UNK
     Route: 048
     Dates: start: 20101123, end: 20101130
  14. LIPITOR [Concomitant]
     Indication: BLOOD CHOLESTEROL INCREASED
     Dosage: 80 MG, QD
     Route: 048

REACTIONS (6)
  - DECREASED APPETITE [None]
  - DRY MOUTH [None]
  - HALLUCINATION, VISUAL [None]
  - INCORRECT DOSE ADMINISTERED [None]
  - DEHYDRATION [None]
  - CONSTIPATION [None]
